FAERS Safety Report 18044403 (Version 1)
Quarter: 2020Q3

REPORT INFORMATION
  Report Type: Spontaneous
  Country: PL (occurrence: PL)
  Receive Date: 20200720
  Receipt Date: 20200720
  Transmission Date: 20201103
  Serious: Yes (Other)
  Sender: FDA-Public Use
  Company Number: PL-PFIZER INC-2020270779

PATIENT
  Age: 58 Year
  Sex: Male
  Weight: 68 kg

DRUGS (1)
  1. SUTENT [Suspect]
     Active Substance: SUNITINIB MALATE
     Indication: RENAL CELL CARCINOMA
     Dosage: 50 MG
     Route: 048

REACTIONS (13)
  - Renal disorder [Unknown]
  - Leukocytosis [Unknown]
  - Skin lesion [Unknown]
  - Hyperglycaemia [Unknown]
  - Diarrhoea [Unknown]
  - Aspartate aminotransferase increased [Unknown]
  - Thrombocytosis [Unknown]
  - Decreased appetite [Unknown]
  - Anaemia [Unknown]
  - Musculoskeletal pain [Unknown]
  - Alanine aminotransferase increased [Unknown]
  - Neutrophilia [Unknown]
  - Taste disorder [Unknown]
